FAERS Safety Report 5888953-6 (Version None)
Quarter: 2008Q3

REPORT INFORMATION
  Report Type: 
  Country: None (occurrence: None)
  Receive Date: 20080917
  Receipt Date: 20080903
  Transmission Date: 20090109
  Serious: Yes (Hospitalization)
  Sender: FDA-Public Use
  Company Number: 8036919

PATIENT
  Age: 18 Year
  Sex: Male

DRUGS (11)
  1. PREDNISOLONE [Suspect]
     Indication: COLITIS ULCERATIVE
  2. PREDNISOLONE [Suspect]
     Indication: COLITIS ULCERATIVE
     Dosage: 40 MG/D
  3. PREDNISOLONE [Suspect]
     Indication: COLITIS ULCERATIVE
     Dosage: 10 MG/D
  4. PREDNISOLONE [Suspect]
     Indication: COLITIS ULCERATIVE
  5. OLSALAZINE [Suspect]
     Indication: COLITIS ULCERATIVE
  6. OLSALAZINE [Suspect]
     Indication: COLITIS ULCERATIVE
  7. AZATHIOPRINE [Suspect]
     Indication: COLITIS ULCERATIVE
  8. AZATHIOPRINE [Suspect]
     Indication: COLITIS ULCERATIVE
  9. HEPARIN [Suspect]
     Indication: ANTICOAGULANT THERAPY
     Dosage: 5000 IU ONCE IVI
     Route: 042
  10. HEPARIN [Suspect]
     Dosage: IVI
  11. WARFARIN SODIUM [Concomitant]

REACTIONS (6)
  - BENIGN INTRACRANIAL HYPERTENSION [None]
  - CEREBRAL VENOUS THROMBOSIS [None]
  - HEPARIN-INDUCED THROMBOCYTOPENIA [None]
  - IRON DEFICIENCY ANAEMIA [None]
  - PERITONSILLITIS [None]
  - UPPER RESPIRATORY TRACT INFECTION [None]
